FAERS Safety Report 15475184 (Version 2)
Quarter: 2018Q4

REPORT INFORMATION
  Report Type: Spontaneous
  Country: US (occurrence: US)
  Receive Date: 20181008
  Receipt Date: 20181116
  Transmission Date: 20190205
  Serious: No
  Sender: FDA-Public Use
  Company Number: US-SA-2018SA273699

PATIENT
  Age: 75 Year
  Sex: Male
  Weight: 79 kg

DRUGS (1)
  1. CORTIZONE 10 COOLING RELIEF [Suspect]
     Active Substance: HYDROCORTISONE
     Indication: PRURITUS
     Dosage: 1 ML, 1X
     Route: 061

REACTIONS (3)
  - Burning sensation [Unknown]
  - Thermal burn [Recovered/Resolved]
  - Discomfort [Unknown]

NARRATIVE: CASE EVENT DATE: 20180926
